FAERS Safety Report 18469643 (Version 2)
Quarter: 2020Q4

REPORT INFORMATION
  Report Type: Report from Study
  Country: FR (occurrence: FR)
  Receive Date: 20201105
  Receipt Date: 20201110
  Transmission Date: 20210114
  Serious: Yes (Death, Hospitalization)
  Sender: FDA-Public Use
  Company Number: FR-BAYER-2020-239831

PATIENT
  Age: 84 Year
  Sex: Female

DRUGS (6)
  1. INTERFERON BETA - 1B [Suspect]
     Active Substance: INTERFERON BETA-1B
     Indication: COVID-19
     Dosage: 9.6 MUI ,2 TIMES DAILY
     Route: 055
     Dates: start: 20201001, end: 20201015
  2. CLAFORAN [Concomitant]
     Active Substance: CEFOTAXIME SODIUM
     Dosage: UNK
     Dates: start: 20200926, end: 20201004
  3. AUGMENTIN [Concomitant]
     Active Substance: AMOXICILLIN\CLAVULANATE POTASSIUM
     Dosage: UNK
     Dates: start: 20200923
  4. DEXAMETHASONE. [Concomitant]
     Active Substance: DEXAMETHASONE
     Dosage: UNK
     Dates: start: 20200924
  5. INTERFERON BETA - 1B [Suspect]
     Active Substance: INTERFERON BETA-1B
     Indication: COVID-19
     Dosage: 9.6 MUI ,2 TIMES DAILY
     Route: 055
     Dates: start: 20200929, end: 20200930
  6. FLECAINE [Concomitant]
     Active Substance: FLECAINIDE

REACTIONS (3)
  - Fungaemia [Fatal]
  - Bacteraemia [Fatal]
  - Sepsis [Fatal]

NARRATIVE: CASE EVENT DATE: 20201019
